FAERS Safety Report 7073475-X (Version None)
Quarter: 2010Q4

REPORT INFORMATION
  Report Type: 
  Country: None (occurrence: None)
  Receive Date: 20101029
  Receipt Date: 20100716
  Transmission Date: 20110411
  Serious: Yes (Life-Threatening, Other)
  Sender: FDA-Public Use
  Company Number: A0866775A

PATIENT
  Age: 9 Year
  Sex: Male

DRUGS (2)
  1. ADVAIR DISKUS 100/50 [Suspect]
     Indication: ASTHMA
     Dosage: 1PUFF TWICE PER DAY
     Route: 055
     Dates: start: 20100501, end: 20100501
  2. NEBULIZER [Concomitant]

REACTIONS (1)
  - HYPERSENSITIVITY [None]
